FAERS Safety Report 10619940 (Version 1)
Quarter: 2014Q4

REPORT INFORMATION
  Report Type: Spontaneous
  Country: US (occurrence: None)
  Receive Date: 20141128
  Receipt Date: 20141128
  Transmission Date: 20150529
  Serious: Yes (Hospitalization)
  Sender: FDA-Public Use
  Company Number: IMP_08232_2014

PATIENT
  Age: 76 Year
  Sex: Female

DRUGS (3)
  1. TERBUTALINE [Suspect]
     Active Substance: TERBUTALINE
     Indication: WHEEZING
     Dosage: DF RESPIRATORY (INHALATION)
     Route: 055
  2. DEXAMETHASONE. [Concomitant]
     Active Substance: DEXAMETHASONE
  3. TERBUTALINE [Suspect]
     Active Substance: TERBUTALINE
     Indication: DYSPNOEA
     Dosage: DF RESPIRATORY (INHALATION)
     Route: 055

REACTIONS (7)
  - Stress cardiomyopathy [None]
  - Wheezing [None]
  - Condition aggravated [None]
  - Hypoxia [None]
  - No therapeutic response [None]
  - Dyspnoea [None]
  - Lung disorder [None]
